FAERS Safety Report 24631838 (Version 2)
Quarter: 2024Q4

REPORT INFORMATION
  Report Type: Report from Study
  Country: CA (occurrence: CA)
  Receive Date: 20241118
  Receipt Date: 20241227
  Transmission Date: 20250115
  Serious: Yes (Hospitalization)
  Sender: ALEXION PHARMACEUTICALS
  Company Number: CA-AstraZeneca-CH-00729173A

PATIENT

DRUGS (17)
  1. BENRALIZUMAB [Suspect]
     Active Substance: BENRALIZUMAB
     Indication: Asthma
     Dosage: UNK MILLIGRAM PER MILLILITRE
     Route: 058
  2. BENRALIZUMAB [Suspect]
     Active Substance: BENRALIZUMAB
     Dosage: UNK MILLIGRAM PER MILLILITRE
  3. BENRALIZUMAB [Suspect]
     Active Substance: BENRALIZUMAB
     Dosage: UNK MILLIGRAM PER MILLILITRE
     Route: 058
  4. BENRALIZUMAB [Suspect]
     Active Substance: BENRALIZUMAB
     Dosage: UNK MILLIGRAM PER MILLILITRE
  5. BENRALIZUMAB [Suspect]
     Active Substance: BENRALIZUMAB
     Dosage: 30 MG/ML
     Route: 058
  6. BENRALIZUMAB [Suspect]
     Active Substance: BENRALIZUMAB
     Dosage: 30 MG/ML
  7. BENRALIZUMAB [Suspect]
     Active Substance: BENRALIZUMAB
     Dosage: 30 MG/ML
     Route: 058
  8. BENRALIZUMAB [Suspect]
     Active Substance: BENRALIZUMAB
     Dosage: 30 MG/ML
  9. AZITHROMYCIN [Concomitant]
     Active Substance: AZITHROMYCIN
     Route: 065
  10. AZITHROMYCIN [Concomitant]
     Active Substance: AZITHROMYCIN
     Route: 065
  11. SYMBICORT [Concomitant]
     Active Substance: BUDESONIDE\FORMOTEROL FUMARATE DIHYDRATE
     Dosage: : 200/6 MCG,50 MG
     Route: 065
  12. SYMBICORT [Concomitant]
     Active Substance: BUDESONIDE\FORMOTEROL FUMARATE DIHYDRATE
     Dosage: : 200/6 MCG,50 MG
     Route: 065
  13. VENTOLIN [Concomitant]
     Active Substance: ALBUTEROL SULFATE
     Dosage: 100 MICROGRAM
     Route: 065
  14. VENTOLIN [Concomitant]
     Active Substance: ALBUTEROL SULFATE
     Dosage: 100 MICROGRAM
     Route: 065
  15. XOLAIR [Concomitant]
     Active Substance: OMALIZUMAB
     Route: 065
  16. XOLAIR [Concomitant]
     Active Substance: OMALIZUMAB
     Route: 065
  17. MONTELUKAST [Concomitant]
     Active Substance: MONTELUKAST SODIUM
     Dosage: 10 UNK

REACTIONS (2)
  - COVID-19 [Unknown]
  - Carbon dioxide increased [Unknown]
